FAERS Safety Report 9576531 (Version 1)
Quarter: 2013Q4

REPORT INFORMATION
  Report Type: Spontaneous
  Country: US (occurrence: US)
  Receive Date: 20131001
  Receipt Date: 20131001
  Transmission Date: 20140711
  Serious: No
  Sender: FDA-Public Use
  Company Number: US-AMGEN-USASP2013003829

PATIENT
  Age: 51 Year
  Sex: Female
  Weight: 111 kg

DRUGS (11)
  1. ENBREL [Suspect]
     Indication: RHEUMATOID ARTHRITIS
     Dosage: 50 MG, QWK
     Route: 058
  2. PANCREASE                          /00014701/ [Concomitant]
     Dosage: UNK, EC
  3. INDERAL [Concomitant]
     Dosage: 40 MG, UNK
  4. SYNTHROID [Concomitant]
     Dosage: 75 MUG, UNK
  5. NOVOLOG [Concomitant]
     Dosage: UNK
  6. ATACAND [Concomitant]
     Dosage: 8 MG, UNK
  7. PLENDIL [Concomitant]
     Dosage: 10 MG, CR
  8. PRILOSEC                           /00661201/ [Concomitant]
     Dosage: 10 MG, UNK
  9. SULFASALAZIN [Concomitant]
     Dosage: 500 MG, UNK
  10. MULTIVITAMINS, PLAIN [Concomitant]
     Dosage: UNK
  11. PROBIOTIC                          /06395501/ [Concomitant]
     Dosage: UNK

REACTIONS (3)
  - Oropharyngeal discomfort [Unknown]
  - Dysphagia [Unknown]
  - Ear disorder [Unknown]
